FAERS Safety Report 10733216 (Version 1)
Quarter: 2015Q1

REPORT INFORMATION
  Report Type: Spontaneous
  Country: KP (occurrence: KP)
  Receive Date: 20150123
  Receipt Date: 20150123
  Transmission Date: 20150721
  Serious: Yes (Other)
  Sender: FDA-Public Use
  Company Number: KP-CIPLA LTD.-2015SA00513

PATIENT

DRUGS (12)
  1. RITONAVIR. [Suspect]
     Active Substance: RITONAVIR
     Dosage: UNK
     Dates: start: 201301
  2. ATAZANAVIR [Suspect]
     Active Substance: ATAZANAVIR
     Indication: HIV INFECTION
     Dosage: UNK
     Dates: start: 200501
  3. RITONAVIR. [Suspect]
     Active Substance: RITONAVIR
     Indication: HIV INFECTION
     Dosage: UNK
     Dates: start: 200808
  4. LAMIVUDINE. [Suspect]
     Active Substance: LAMIVUDINE
     Indication: HIV INFECTION
     Dosage: UNK
     Dates: start: 200501
  5. STAVUDINE. [Suspect]
     Active Substance: STAVUDINE
     Indication: HIV INFECTION
     Dosage: UNK
     Dates: start: 200501
  6. ABACAVIR [Suspect]
     Active Substance: ABACAVIR
     Indication: HIV INFECTION
     Dosage: UNK
     Dates: start: 201306
  7. ATAZANAVIR [Suspect]
     Active Substance: ATAZANAVIR
     Dosage: UNK
     Dates: start: 200808
  8. HIGHLY ACTIVE ANTIRETROVIRAL THERAPY [Suspect]
     Active Substance: UNSPECIFIED INGREDIENT
     Indication: HIV INFECTION
  9. STAVUDINE. [Suspect]
     Active Substance: STAVUDINE
     Dosage: UNK
     Dates: start: 200808
  10. LAMIVUDINE. [Suspect]
     Active Substance: LAMIVUDINE
     Dosage: UNK
     Dates: start: 200808
  11. ATAZANAVIR [Suspect]
     Active Substance: ATAZANAVIR
     Dosage: UNK
     Dates: start: 201306
  12. KOREAN RED GINSENG [Suspect]
     Active Substance: DIETARY SUPPLEMENT
     Indication: HIV INFECTION

REACTIONS (5)
  - Pyelonephritis [Unknown]
  - Oesophageal ulcer [None]
  - Herpes zoster [Unknown]
  - Drug resistance [Unknown]
  - Cytomegalovirus infection [Unknown]

NARRATIVE: CASE EVENT DATE: 200501
